FAERS Safety Report 7542350-6 (Version None)
Quarter: 2011Q2

REPORT INFORMATION
  Report Type: 
  Country: None (occurrence: None)
  Receive Date: 20110524
  Receipt Date: 20110301
  Transmission Date: 20111010
  Serious: No
  Sender: FDA-Public Use
  Company Number: 027061

PATIENT
  Sex: Male

DRUGS (8)
  1. PENTASA [Concomitant]
  2. M.V.I. [Concomitant]
  3. SYNTHROID [Concomitant]
  4. CIMZIA [Suspect]
     Indication: CROHN'S DISEASE
     Dosage: 400 MG 1X/28 DAYS, LAST DOSAGE RECEIVED: 01/FEB/2011 SUBCUTANEOUS
     Route: 058
     Dates: start: 20090601, end: 20110201
  5. ENTOCORT EC [Concomitant]
  6. NEXIUM [Concomitant]
  7. FLUDROCORTISONE ACETATE [Concomitant]
  8. OMEGA /01454401/ [Concomitant]

REACTIONS (4)
  - ABDOMINAL DISTENSION [None]
  - NAUSEA [None]
  - ABDOMINAL PAIN [None]
  - VOMITING [None]
